FAERS Safety Report 8786587 (Version 2)
Quarter: 2012Q4

REPORT INFORMATION
  Report Type: 
  Country: US (occurrence: US)
  Receive Date: 20120914
  Receipt Date: 20121008
  Transmission Date: 20130627
  Serious: No
  Sender: FDA-Public Use
  Company Number: US-VERTEX PHARMACEUTICAL INC.-AE-2012-010572

PATIENT
  Age: 56 Year
  Sex: Male
  Weight: 83 kg

DRUGS (8)
  1. VX-950 [Suspect]
     Indication: HEPATITIS C
     Dosage: 750 mg, tid
     Route: 048
  2. PEG-INTRON [Concomitant]
     Indication: HEPATITIS C
     Dosage: 120 ?g, qw
     Route: 058
  3. RIBAVIRIN [Concomitant]
     Indication: HEPATITIS C
     Dosage: 200 mg, UNK
     Route: 048
  4. HUMULIN R [Concomitant]
     Dosage: U-100
     Route: 058
  5. LISINOPRIL [Concomitant]
     Route: 048
  6. NOVOLOG [Concomitant]
     Dosage: 100/ML
     Route: 058
  7. ATARAX                             /00058401/ [Concomitant]
     Dosage: 10 MG/5 Ml
     Route: 048
  8. HYDROCORT                          /00028602/ [Concomitant]
     Dosage: 0.5%

REACTIONS (11)
  - Influenza like illness [Unknown]
  - Weight decreased [Unknown]
  - Oral herpes [Unknown]
  - Dry mouth [Unknown]
  - Fatigue [Unknown]
  - Anaemia [Unknown]
  - Haemorrhoidal haemorrhage [Not Recovered/Not Resolved]
  - Haemorrhoids [Not Recovered/Not Resolved]
  - Anorectal discomfort [Not Recovered/Not Resolved]
  - Pruritus generalised [Unknown]
  - Dysgeusia [Unknown]
